FAERS Safety Report 8101266-7 (Version None)
Quarter: 2012Q1

REPORT INFORMATION
  Report Type: 
  Country: None (occurrence: None)
  Receive Date: 20120129
  Receipt Date: 20110919
  Transmission Date: 20120608
  Serious: Yes (Other)
  Sender: FDA-Public Use
  Company Number: US-ABBOTT-11P-163-0856175-00

PATIENT
  Sex: Female
  Weight: 68.1 kg

DRUGS (7)
  1. ASPIRIN [Concomitant]
     Indication: PRODUCT USED FOR UNKNOWN INDICATION
  2. HUMIRA [Suspect]
     Indication: RHEUMATOID ARTHRITIS
     Route: 058
     Dates: start: 20010301
  3. LIPITOR [Concomitant]
     Indication: BLOOD CHOLESTEROL INCREASED
  4. DIAZIDE [Concomitant]
     Indication: DIURETIC THERAPY
  5. PREDNISONE TAB [Concomitant]
     Indication: RHEUMATOID ARTHRITIS
  6. EFFIENT [Suspect]
     Indication: STENT PLACEMENT
     Dates: start: 20110826
  7. METOPROLOL TARTRATE [Concomitant]
     Indication: HYPERTENSION
     Route: 058

REACTIONS (2)
  - ABDOMINAL DISCOMFORT [None]
  - CARDIOVASCULAR DISORDER [None]
